FAERS Safety Report 4399089-8 (Version None)
Quarter: 2004Q2

REPORT INFORMATION
  Report Type: 
  Country: None (occurrence: None)
  Receive Date: 20040621
  Receipt Date: 20031118
  Transmission Date: 20050107
  Serious: Yes (Death)
  Sender: FDA-Public Use
  Company Number: 2012968

PATIENT
  Age: 42 Year
  Sex: Male
  Weight: 85.7 kg

DRUGS (3)
  1. OXYCONTIN [Suspect]
  2. ETHANOL (ETHANOL) [Suspect]
  3. CANNABANOIDS [Suspect]

REACTIONS (2)
  - DRUG ABUSER [None]
  - MULTIPLE DRUG OVERDOSE ACCIDENTAL [None]
